FAERS Safety Report 13408778 (Version 2)
Quarter: 2017Q2

REPORT INFORMATION
  Report Type: Spontaneous
  Country: US (occurrence: US)
  Receive Date: 20170406
  Receipt Date: 20170630
  Transmission Date: 20170830
  Serious: Yes (Hospitalization, Other)
  Sender: FDA-Public Use
  Company Number: US-TAKEDA-2017MPI002917

PATIENT
  Age: 65 Year
  Sex: Male

DRUGS (6)
  1. NORTHERA [Suspect]
     Active Substance: DROXIDOPA
     Indication: NEUROPATHY PERIPHERAL
     Dosage: 400 MG, TID
     Route: 065
     Dates: start: 201610
  2. VELCADE [Suspect]
     Active Substance: BORTEZOMIB
     Indication: AMYLOIDOSIS
     Dosage: UNK
     Route: 065
  3. NORTHERA [Suspect]
     Active Substance: DROXIDOPA
     Indication: AUTONOMIC NERVOUS SYSTEM IMBALANCE
     Dosage: UNK, QD
     Route: 065
     Dates: start: 20160923
  4. NORTHERA [Suspect]
     Active Substance: DROXIDOPA
     Dosage: 400 MG, QD
     Route: 065
  5. NORTHERA [Suspect]
     Active Substance: DROXIDOPA
     Dosage: 400 MG, QD
     Route: 065
  6. NORTHERA [Suspect]
     Active Substance: DROXIDOPA
     Dosage: UNK, QD
     Route: 065

REACTIONS (20)
  - Asthenia [Unknown]
  - Drug ineffective [Unknown]
  - Off label use [Unknown]
  - Syncope [Unknown]
  - Loss of consciousness [Unknown]
  - Hypotension [Not Recovered/Not Resolved]
  - Condition aggravated [Unknown]
  - Hypertension [Unknown]
  - Peripheral swelling [Unknown]
  - Headache [Unknown]
  - Diarrhoea [Unknown]
  - Abasia [Unknown]
  - Weight increased [Unknown]
  - Oxygen saturation decreased [Unknown]
  - Neuropathy peripheral [Unknown]
  - Fatigue [Unknown]
  - Nausea [Unknown]
  - Haemoglobin decreased [Unknown]
  - Drug intolerance [Unknown]
  - Dizziness [Unknown]

NARRATIVE: CASE EVENT DATE: 2016
